FAERS Safety Report 7749649-9 (Version None)
Quarter: 2011Q3

REPORT INFORMATION
  Report Type: 
  Country: None (occurrence: None)
  Receive Date: 20110914
  Receipt Date: 20110825
  Transmission Date: 20111222
  Serious: No
  Sender: FDA-Public Use
  Company Number: US-BAYER-2011-078818

PATIENT

DRUGS (4)
  1. MOTRIN [Concomitant]
     Dosage: DAILY DOSE 2 DF
  2. TYLENOL-500 [Concomitant]
     Dosage: DAILY DOSE 2 DF
  3. ALEVE (CAPLET) [Suspect]
     Indication: ANALGESIC THERAPY
     Dosage: DAILY DOSE 3 DF
     Route: 048
  4. EXCEDRIN (MIGRAINE) [Concomitant]
     Dosage: DAILY DOSE 2 DF

REACTIONS (1)
  - GASTRIC DISORDER [None]
